FAERS Safety Report 8570578-5 (Version None)
Quarter: 2012Q3

REPORT INFORMATION
  Report Type: 
  Country: None (occurrence: None)
  Receive Date: 20120804
  Receipt Date: 20120727
  Transmission Date: 20120928
  Serious: No
  Sender: FDA-Public Use
  Company Number: US-009507513-1207USA012296

PATIENT

DRUGS (6)
  1. SPIRIVA [Suspect]
  2. COMBIVENT [Suspect]
  3. FLUTICASONE PROPIONATE [Suspect]
  4. XOPENEX [Suspect]
  5. SINGULAIR [Suspect]
     Route: 048
  6. DULERA [Suspect]

REACTIONS (1)
  - WHEEZING [None]
